FAERS Safety Report 7552801-9 (Version None)
Quarter: 2011Q2

REPORT INFORMATION
  Report Type: 
  Country: None (occurrence: None)
  Receive Date: 20110616
  Receipt Date: 20110608
  Transmission Date: 20111010
  Serious: Yes (Other)
  Sender: FDA-Public Use
  Company Number: PHHY2011HR50016

PATIENT
  Age: 41 Year
  Sex: Female

DRUGS (3)
  1. ALPRAZOLAM [Suspect]
     Indication: DYSTHYMIC DISORDER
     Dosage: 0.5 MG, UNK
  2. SERTRALINE HYDROCHLORIDE [Suspect]
     Indication: DYSTHYMIC DISORDER
     Dosage: 25 MG, UNK
  3. ESCITALOPRAM [Suspect]

REACTIONS (11)
  - WEIGHT INCREASED [None]
  - INSOMNIA [None]
  - ANGIOEDEMA [None]
  - HYPERSENSITIVITY [None]
  - FLUSHING [None]
  - DIARRHOEA [None]
  - URTICARIA [None]
  - ASPHYXIA [None]
  - TONGUE OEDEMA [None]
  - RASH [None]
  - PRURITUS [None]
